FAERS Safety Report 11968909 (Version 1)
Quarter: 2016Q1

REPORT INFORMATION
  Report Type: Spontaneous
  Country: US (occurrence: US)
  Receive Date: 20160128
  Receipt Date: 20160128
  Transmission Date: 20160526
  Serious: No
  Sender: FDA-Public Use
  Company Number: US-ASTRAZENECA-2016SE04450

PATIENT
  Age: 60 Year
  Sex: Female

DRUGS (1)
  1. FASLODEX [Suspect]
     Active Substance: FULVESTRANT
     Indication: BREAST CANCER
     Route: 030
     Dates: start: 201509

REACTIONS (8)
  - Injection site pain [Unknown]
  - Contusion [Unknown]
  - Injection site mass [Recovered/Resolved]
  - Injection site discolouration [Unknown]
  - Urticaria [Unknown]
  - Injection site pruritus [Unknown]
  - Skin swelling [Unknown]
  - Injection site nodule [Not Recovered/Not Resolved]

NARRATIVE: CASE EVENT DATE: 2015
